FAERS Safety Report 5974788-2 (Version None)
Quarter: 2008Q4

REPORT INFORMATION
  Report Type: 
  Country: None (occurrence: None)
  Receive Date: 20081201
  Receipt Date: 20080207
  Transmission Date: 20090506
  Serious: No
  Sender: FDA-Public Use
  Company Number: US-AMGEN-KDL263375

PATIENT
  Sex: Female

DRUGS (5)
  1. ENBREL [Suspect]
     Indication: PSORIASIS
     Dates: start: 20080101, end: 20080129
  2. TRIAMCINOLONE [Concomitant]
     Dates: start: 20070531
  3. LIDEX [Concomitant]
     Dates: start: 20070516
  4. PREDNISONE TAB [Concomitant]
     Dates: start: 20070516
  5. METHOTREXATE [Concomitant]
     Dates: start: 20070604, end: 20071231

REACTIONS (6)
  - INJECTION SITE ERYTHEMA [None]
  - INJECTION SITE IRRITATION [None]
  - INJECTION SITE PRURITUS [None]
  - INJECTION SITE SWELLING [None]
  - INJECTION SITE URTICARIA [None]
  - LATEX ALLERGY [None]
